FAERS Safety Report 12128150 (Version 3)
Quarter: 2016Q2

REPORT INFORMATION
  Report Type: Spontaneous
  Country: BR (occurrence: BR)
  Receive Date: 20160229
  Receipt Date: 20160503
  Transmission Date: 20160815
  Serious: Yes (Hospitalization)
  Sender: FDA-Public Use
  Company Number: BR-PFIZER INC-2016114021

PATIENT
  Age: 75 Year
  Sex: Female
  Weight: 84 kg

DRUGS (5)
  1. LYRICA [Interacting]
     Active Substance: PREGABALIN
     Dosage: 75 MG, 2X/DAY
     Route: 048
     Dates: end: 201602
  2. OXYCONTIN [Interacting]
     Active Substance: OXYCODONE HYDROCHLORIDE
     Indication: INTERVERTEBRAL DISC PROTRUSION
     Dosage: 2 DF (CAPSULES), DAILY
     Dates: start: 1984
  3. LYRICA [Interacting]
     Active Substance: PREGABALIN
     Dosage: 75 MG, DAILY
     Route: 048
     Dates: start: 201510
  4. CODATEN [Concomitant]
     Active Substance: CODEINE PHOSPHATE\DICLOFENAC SODIUM
     Dosage: UNK
     Dates: start: 1986
  5. LYRICA [Suspect]
     Active Substance: PREGABALIN
     Indication: INTERVERTEBRAL DISC PROTRUSION
     Dosage: 300 MG, DAILY
     Route: 048
     Dates: start: 2008

REACTIONS (10)
  - Fall [Recovered/Resolved]
  - Confusional state [Recovered/Resolved]
  - Spinal fracture [Recovered/Resolved]
  - Drug interaction [Recovered/Resolved]
  - Speech disorder [Recovered/Resolved]
  - Rib fracture [Recovered/Resolved]
  - Cholelithiasis [Recovered/Resolved]
  - Dysarthria [Recovered/Resolved]
  - Sedation [Recovered/Resolved]
  - Pain [Recovered/Resolved]

NARRATIVE: CASE EVENT DATE: 201511
